FAERS Safety Report 21634795 (Version 1)
Quarter: 2022Q4

REPORT INFORMATION
  Report Type: Spontaneous
  Country: US (occurrence: US)
  Receive Date: 20221123
  Receipt Date: 20221123
  Transmission Date: 20230112
  Serious: Yes (Other)
  Sender: FDA-Public Use
  Company Number: US-GILEAD-2022-0605817

PATIENT
  Age: 21 Year
  Sex: Female
  Weight: 80 kg

DRUGS (1)
  1. TECARTUS [Suspect]
     Active Substance: BREXUCABTAGENE AUTOLEUCEL
     Indication: Diffuse large B-cell lymphoma
     Dosage: UNK
     Route: 065
     Dates: start: 20220730, end: 20220730

REACTIONS (12)
  - Cytokine release syndrome [Unknown]
  - Fatigue [Unknown]
  - Nausea [Unknown]
  - Headache [Unknown]
  - Tachycardia [Unknown]
  - Aspartate aminotransferase increased [Unknown]
  - Malaise [Unknown]
  - Chills [Unknown]
  - Arthralgia [Unknown]
  - Alanine aminotransferase abnormal [Unknown]
  - Decreased appetite [Unknown]
  - Tremor [Unknown]

NARRATIVE: CASE EVENT DATE: 20220731
